FAERS Safety Report 8013853-5 (Version None)
Quarter: 2011Q4

REPORT INFORMATION
  Report Type: 
  Country: None (occurrence: None)
  Receive Date: 20111229
  Receipt Date: 20111219
  Transmission Date: 20120403
  Serious: Yes (Other)
  Sender: FDA-Public Use
  Company Number: PHHY2011SK106767

PATIENT
  Age: 41 Year
  Sex: Male

DRUGS (9)
  1. RASILEZ [Suspect]
     Dosage: 150 MG, UNK
     Dates: start: 20090601
  2. RASILEZ [Suspect]
     Dosage: 300 MG, UNK
     Dates: start: 20110901
  3. VERAPAMIL [Concomitant]
     Dosage: 240 MG, UNK
     Dates: start: 20090601
  4. ALISKIREN/HCTZ [Suspect]
     Dosage: 1 DF, UNK
     Dates: start: 20100101
  5. URAPIDIL [Concomitant]
     Dosage: 60 MG, UNK
     Dates: start: 20090901
  6. TRANDOLAPRIL [Concomitant]
     Dosage: 4 MG, UNK
     Dates: start: 20090601
  7. INDAPAMIDE [Concomitant]
     Dosage: 1.5 MG, UNK
     Dates: start: 20090601
  8. URAPIDIL [Concomitant]
     Dosage: 30 MG, UNK
     Dates: start: 20090601
  9. AMLODIPINE [Concomitant]
     Dosage: 2 DF, QD (ONE IN MORNING AND ONE AT NIGHT)

REACTIONS (2)
  - ATRIOVENTRICULAR BLOCK FIRST DEGREE [None]
  - BRADYCARDIA [None]
